FAERS Safety Report 6029810-4 (Version None)
Quarter: 2009Q1

REPORT INFORMATION
  Report Type: 
  Country: None (occurrence: None)
  Receive Date: 20090106
  Receipt Date: 20090106
  Transmission Date: 20090719
  Serious: Yes (Other)
  Sender: FDA-Public Use
  Company Number: None

PATIENT
  Age: 44 Year
  Sex: Male

DRUGS (2)
  1. BUPROPRION XL TEVA [Suspect]
     Indication: MAJOR DEPRESSION
     Dosage: 300 DAILY PO
     Route: 048
  2. BUPROPRION XL WATSON [Suspect]
     Indication: MAJOR DEPRESSION
     Dosage: 300 DAILY PO
     Route: 048

REACTIONS (2)
  - DRUG INEFFECTIVE [None]
  - THERAPEUTIC RESPONSE UNEXPECTED WITH DRUG SUBSTITUTION [None]
